FAERS Safety Report 19489074 (Version 1)
Quarter: 2021Q3

REPORT INFORMATION
  Report Type: Report from Study
  Country: US (occurrence: US)
  Receive Date: 20210703
  Receipt Date: 20210703
  Transmission Date: 20211014
  Serious: Yes (Hospitalization, Other)
  Sender: FDA-Public Use
  Company Number: US-BRISTOL-MYERS SQUIBB COMPANY-BMS-2021-061503

PATIENT
  Age: 62 Year
  Sex: Male
  Weight: 90.7 kg

DRUGS (2)
  1. IPILIMUMAB [Suspect]
     Active Substance: IPILIMUMAB
     Indication: ACUTE MYELOID LEUKAEMIA
     Dosage: 930 MILLIGRAM
     Route: 065
     Dates: start: 20210527
  2. DECITABINE. [Suspect]
     Active Substance: DECITABINE
     Indication: ACUTE MYELOID LEUKAEMIA
     Dosage: 215 MILLIGRAM
     Route: 065
     Dates: start: 20210430

REACTIONS (2)
  - Urinary tract obstruction [Unknown]
  - Febrile neutropenia [Unknown]

NARRATIVE: CASE EVENT DATE: 20210608
